FAERS Safety Report 5017722-4 (Version None)
Quarter: 2006Q2

REPORT INFORMATION
  Report Type: 
  Country: None (occurrence: None)
  Receive Date: 20060605
  Receipt Date: 20060601
  Transmission Date: 20061013
  Serious: Yes (Life-Threatening, Hospitalization)
  Sender: FDA-Public Use
  Company Number: PHRM2006FR01690

PATIENT
  Age: 47 Year
  Sex: Male

DRUGS (4)
  1. TEGRETOL [Suspect]
     Indication: EPILEPSY
     Dosage: UNK, UNK
     Route: 048
  2. KEPPRA [Concomitant]
  3. EPITOMAX [Concomitant]
  4. ALDACTONE [Suspect]
     Dosage: 75 MG DAILY
     Route: 048

REACTIONS (2)
  - COMA [None]
  - HYPONATRAEMIA [None]
